FAERS Safety Report 15438948 (Version 1)
Quarter: 2018Q3

REPORT INFORMATION
  Report Type: Spontaneous
  Country: JP (occurrence: JP)
  Receive Date: 20180928
  Receipt Date: 20180928
  Transmission Date: 20181010
  Serious: Yes (Other)
  Sender: FDA-Public Use
  Company Number: JP-SUN PHARMACEUTICAL INDUSTRIES LTD-2018RR-185712

PATIENT
  Age: 39 Year
  Sex: Female

DRUGS (2)
  1. PARACETAMOL [Suspect]
     Active Substance: ACETAMINOPHEN
     Indication: ABDOMINAL PAIN LOWER
     Route: 065
  2. PENTAZOCINE [Suspect]
     Active Substance: PENTAZOCINE
     Indication: ABDOMINAL PAIN LOWER
     Route: 065

REACTIONS (2)
  - Gestational hypertension [Unknown]
  - Exposure during pregnancy [Unknown]
